FAERS Safety Report 23935822 (Version 4)
Quarter: 2024Q3

REPORT INFORMATION
  Report Type: Report from Study
  Country: US (occurrence: US)
  Receive Date: 20240604
  Receipt Date: 20240711
  Transmission Date: 20241016
  Serious: Yes (Other)
  Sender: UCB
  Company Number: US-UCBSA-2024012632

PATIENT
  Age: 71 Year
  Sex: Female

DRUGS (3)
  1. ROZANOLIXIZUMAB [Suspect]
     Active Substance: ROZANOLIXIZUMAB
     Indication: Myasthenia gravis
     Dosage: 560 MILLIGRAM, WEEKLY (QW), ONCE WEEKLY FOR 6 WEEKS
     Route: 058
     Dates: start: 20231120
  2. ROZANOLIXIZUMAB [Suspect]
     Active Substance: ROZANOLIXIZUMAB
     Dosage: UNK, ONCE A WEEK FOR 6 WEEKS
     Route: 058
     Dates: start: 20240221
  3. NEUPOGEN [Concomitant]
     Active Substance: FILGRASTIM
     Indication: Product used for unknown indication
     Dosage: UNK

REACTIONS (9)
  - Hallucination [Not Recovered/Not Resolved]
  - Arteriosclerosis coronary artery [Not Recovered/Not Resolved]
  - Abdominal pain upper [Not Recovered/Not Resolved]
  - Diarrhoea [Not Recovered/Not Resolved]
  - Vomiting [Not Recovered/Not Resolved]
  - Energy increased [Not Recovered/Not Resolved]
  - Nausea [Recovered/Resolved]
  - Therapeutic response shortened [Unknown]
  - Therapeutic product effect incomplete [Unknown]

NARRATIVE: CASE EVENT DATE: 20240307
